FAERS Safety Report 10214615 (Version 3)
Quarter: 2014Q2

REPORT INFORMATION
  Report Type: Report from Study
  Country: DE (occurrence: DE)
  Receive Date: 20140603
  Receipt Date: 20140627
  Transmission Date: 20141212
  Serious: Yes (Hospitalization)
  Sender: FDA-Public Use
  Company Number: DE-GLAXOSMITHKLINE-B0999119A

PATIENT
  Age: 67 Year
  Sex: Male

DRUGS (6)
  1. TRAMETINIB [Suspect]
     Indication: METASTATIC MALIGNANT MELANOMA
     Dates: start: 20140430, end: 20140520
  2. DABRAFENIB [Suspect]
     Indication: METASTATIC MALIGNANT MELANOMA
     Dates: start: 20140205, end: 20140520
  3. BELOC ZOK [Concomitant]
  4. IBUPROFEN [Concomitant]
  5. METOCLOPRAMID [Concomitant]
  6. PAMIDRONATE [Concomitant]

REACTIONS (1)
  - General physical health deterioration [Recovering/Resolving]
